FAERS Safety Report 13075047 (Version 1)
Quarter: 2016Q4

REPORT INFORMATION
  Report Type: Spontaneous
  Country: US (occurrence: US)
  Receive Date: 20161230
  Receipt Date: 20161230
  Transmission Date: 20170207
  Serious: Yes (Hospitalization)
  Sender: FDA-Public Use
  Company Number: US-WEST-WARD PHARMACEUTICALS CORP.-US-H14001-16-03093

PATIENT
  Age: 21 Year
  Sex: Female

DRUGS (1)
  1. HYDROMORPHONE [Suspect]
     Active Substance: HYDROMORPHONE
     Indication: PRODUCT USED FOR UNKNOWN INDICATION
     Route: 042

REACTIONS (10)
  - Intentional product use issue [Unknown]
  - Product preparation error [Unknown]
  - Sepsis [Recovered/Resolved]
  - Pneumonia [Unknown]
  - Cronobacter infection [Unknown]
  - Candida infection [Unknown]
  - Injection site cellulitis [Unknown]
  - Staphylococcal infection [Unknown]
  - Drug abuse [Unknown]
  - Drug dependence [Unknown]
